FAERS Safety Report 10447571 (Version 1)
Quarter: 2014Q3

REPORT INFORMATION
  Report Type: Spontaneous
  Country: US (occurrence: US)
  Receive Date: 20140911
  Receipt Date: 20140911
  Transmission Date: 20150326
  Serious: No
  Sender: FDA-Public Use
  Company Number: US-BEH-2014042880

PATIENT
  Sex: Female
  Weight: 64 kg

DRUGS (21)
  1. ZEMAIRA [Suspect]
     Active Substance: .ALPHA.1-PROTEINASE INHIBITOR HUMAN
     Indication: ALPHA-1 ANTI-TRYPSIN DEFICIENCY
     Route: 042
  2. ZOLPIDEM [Concomitant]
     Active Substance: ZOLPIDEM\ZOLPIDEM TARTRATE
  3. DIPHENHYDRAMINE [Concomitant]
     Active Substance: DIPHENHYDRAMINE
  4. ASPIRIN. [Concomitant]
     Active Substance: ASPIRIN
  5. HEPARIN [Concomitant]
     Active Substance: HEPARIN SODIUM
  6. OXYGEN. [Concomitant]
     Active Substance: OXYGEN
  7. LOPRESSOR [Concomitant]
     Active Substance: METOPROLOL TARTRATE
  8. CYANOCOBALAMIN. [Concomitant]
     Active Substance: CYANOCOBALAMIN
  9. FERROUS SULFATE [Concomitant]
     Active Substance: FERROUS SULFATE\FERROUS SULFATE, DRIED
  10. EPINEPHRINE. [Concomitant]
     Active Substance: EPINEPHRINE
  11. SODIUM CHLORIDE. [Concomitant]
     Active Substance: SODIUM CHLORIDE
  12. PEPPERMINT. [Concomitant]
     Active Substance: PEPPERMINT
  13. GLIPIZIDE. [Concomitant]
     Active Substance: GLIPIZIDE
  14. ALEVE [Concomitant]
     Active Substance: NAPROXEN SODIUM
  15. XALATAN [Concomitant]
     Active Substance: LATANOPROST
  16. LIDOCAINE/PRILOCAINE [Concomitant]
  17. NITROGLYCERIN. [Concomitant]
     Active Substance: NITROGLYCERIN
  18. NORVASC [Concomitant]
     Active Substance: AMLODIPINE BESYLATE
  19. METFORMIN [Concomitant]
     Active Substance: METFORMIN HYDROCHLORIDE
  20. VITAMIN B12 [Concomitant]
     Active Substance: CYANOCOBALAMIN
  21. ALBUTEROL. [Concomitant]
     Active Substance: ALBUTEROL

REACTIONS (1)
  - Peripheral swelling [Unknown]
